FAERS Safety Report 4294439-5 (Version None)
Quarter: 2004Q1

REPORT INFORMATION
  Report Type: 
  Country: None (occurrence: None)
  Receive Date: 20040211
  Receipt Date: 20040203
  Transmission Date: 20041129
  Serious: Yes (Death)
  Sender: FDA-Public Use
  Company Number: 163-20785-04020034

PATIENT
  Age: 56 Year
  Sex: Male

DRUGS (1)
  1. THALOMID [Suspect]
     Indication: MULTIPLE MYELOMA
     Dosage: 400 MG, DAILY; ORAL
     Route: 048
     Dates: start: 20030612, end: 20040101

REACTIONS (2)
  - CARCINOMA [None]
  - WHITE BLOOD CELL COUNT DECREASED [None]
